FAERS Safety Report 5541935-6 (Version None)
Quarter: 2007Q4

REPORT INFORMATION
  Report Type: 
  Country: None (occurrence: None)
  Receive Date: 20071210
  Receipt Date: 20071207
  Transmission Date: 20080405
  Serious: Yes (Other)
  Sender: FDA-Public Use
  Company Number: US-BRISTOL-MYERS SQUIBB COMPANY-14008023

PATIENT

DRUGS (1)
  1. COUMADIN [Suspect]

REACTIONS (1)
  - ATRIAL FIBRILLATION [None]
